FAERS Safety Report 9834571 (Version 1)
Quarter: 2014Q1

REPORT INFORMATION
  Report Type: Spontaneous
  Country: US (occurrence: US)
  Receive Date: 20140122
  Receipt Date: 20140122
  Transmission Date: 20141002
  Serious: No
  Sender: FDA-Public Use
  Company Number: US-BAYER-2014-009220

PATIENT
  Sex: Female

DRUGS (1)
  1. NATAZIA [Suspect]
     Dosage: UNK
     Route: 048
     Dates: start: 2013

REACTIONS (1)
  - Hair growth abnormal [Not Recovered/Not Resolved]
